FAERS Safety Report 6924455-3 (Version None)
Quarter: 2010Q3

REPORT INFORMATION
  Report Type: 
  Country: None (occurrence: None)
  Receive Date: 20100810
  Receipt Date: 20100802
  Transmission Date: 20110219
  Serious: Yes (Life-Threatening, Hospitalization)
  Sender: FDA-Public Use
  Company Number: 20100324

PATIENT
  Age: 62 Year
  Sex: Male

DRUGS (2)
  1. VENOFER [Suspect]
     Indication: ANAEMIA
     Dosage: 200 MG, UNK DURATION INTRAVENOUS BOLUS
     Route: 040
     Dates: start: 20100706, end: 20100706
  2. METFORMIN [Concomitant]

REACTIONS (3)
  - BODY TEMPERATURE DECREASED [None]
  - CHEST PAIN [None]
  - PALPITATIONS [None]
